FAERS Safety Report 11831324 (Version 1)
Quarter: 2015Q4

REPORT INFORMATION
  Report Type: Spontaneous
  Country: GB (occurrence: GB)
  Receive Date: 20151214
  Receipt Date: 20151214
  Transmission Date: 20160305
  Serious: Yes (Other)
  Sender: FDA-Public Use
  Company Number: GB-009507513-1512GBR003610

PATIENT
  Age: 38 Year
  Sex: Female

DRUGS (1)
  1. NEXPLANON [Suspect]
     Active Substance: ETONOGESTREL
     Indication: CONTRACEPTIVE IMPLANT
     Dosage: UNK
     Route: 023

REACTIONS (8)
  - Implant site pain [Not Recovered/Not Resolved]
  - Implant site erythema [Recovered/Resolved]
  - Pain in extremity [Unknown]
  - Arthralgia [Not Recovered/Not Resolved]
  - Implant site infection [Recovered/Resolved]
  - Sensory loss [Not Recovered/Not Resolved]
  - Implant site swelling [Recovered/Resolved]
  - Paraesthesia [Not Recovered/Not Resolved]
